FAERS Safety Report 7478612-0 (Version None)
Quarter: 2011Q2

REPORT INFORMATION
  Report Type: 
  Country: None (occurrence: None)
  Receive Date: 20110513
  Receipt Date: 20110502
  Transmission Date: 20111010
  Serious: Yes (Other)
  Sender: FDA-Public Use
  Company Number: US-PFIZER INC-2010129156

PATIENT
  Sex: Female
  Weight: 77.098 kg

DRUGS (7)
  1. CHANTIX [Suspect]
     Indication: SMOKING CESSATION THERAPY
     Dosage: 0.5 MG, 1X/DAY
     Route: 048
     Dates: start: 20100729, end: 20100801
  2. PROTONIX [Suspect]
     Indication: ABDOMINAL DISCOMFORT
     Dosage: 40 MG, 1X/DAY
     Route: 048
     Dates: start: 20100801
  3. TRAZODONE HCL [Suspect]
     Dosage: UNK
     Dates: start: 20100101
  4. CELEXA [Suspect]
     Dosage: UNK
     Dates: start: 20100101
  5. PROTONIX [Suspect]
     Indication: MALAISE
  6. LIPITOR [Concomitant]
     Indication: BLOOD CHOLESTEROL INCREASED
     Dosage: UNK
     Route: 048
     Dates: start: 20000101
  7. CHANTIX [Suspect]
     Indication: EX-TOBACCO USER
     Dosage: 1 MG, 2X/DAY
     Route: 048
     Dates: start: 20100801, end: 20100819

REACTIONS (14)
  - HOMICIDAL IDEATION [None]
  - GASTROINTESTINAL DISORDER [None]
  - CHILLS [None]
  - MENTAL DISORDER [None]
  - HALLUCINATION [None]
  - MEMORY IMPAIRMENT [None]
  - PERSONALITY CHANGE [None]
  - IMPAIRED WORK ABILITY [None]
  - DRUG INEFFECTIVE [None]
  - SUICIDAL IDEATION [None]
  - DEPRESSION [None]
  - SPEECH DISORDER [None]
  - ANXIETY [None]
  - FEELING ABNORMAL [None]
